FAERS Safety Report 9289437 (Version 1)
Quarter: 2013Q2

REPORT INFORMATION
  Report Type: Spontaneous
  Country: US (occurrence: US)
  Receive Date: 20130514
  Receipt Date: 20130514
  Transmission Date: 20140414
  Serious: Yes (Disabling)
  Sender: FDA-Public Use
  Company Number: US-MYLANLABS-2013S1009716

PATIENT
  Age: 86 Year
  Sex: Female

DRUGS (17)
  1. RANOLAZINE [Suspect]
     Route: 065
  2. ATORVASTATIN [Interacting]
     Route: 065
  3. PRASUGREL [Concomitant]
     Route: 065
  4. METOPROLOL [Concomitant]
     Route: 065
  5. LISINOPRIL [Concomitant]
     Route: 065
  6. FELODIPINE [Concomitant]
     Route: 065
  7. ASPIRIN [Concomitant]
     Route: 065
  8. FUROSEMIDE [Concomitant]
     Route: 065
  9. NITROGLYCERIN [Concomitant]
     Route: 062
  10. RISEDRONIC ACID [Concomitant]
     Route: 065
  11. RABEPRAZOLE [Concomitant]
     Route: 065
  12. POTASSIUM CHLORIDE [Concomitant]
     Route: 065
  13. SODIUM DIOCTYL SULFOSUCCINATE [Concomitant]
     Route: 065
  14. CALCIUM [Concomitant]
     Route: 065
  15. SENNA [Concomitant]
     Route: 065
  16. FLONASE [Concomitant]
     Route: 065
  17. LORATADINE [Concomitant]
     Route: 065

REACTIONS (2)
  - Myopathy [Recovering/Resolving]
  - Drug interaction [Recovering/Resolving]
